FAERS Safety Report 19614284 (Version 1)
Quarter: 2021Q3

REPORT INFORMATION
  Report Type: Spontaneous
  Country: US (occurrence: US)
  Receive Date: 20210727
  Receipt Date: 20210727
  Transmission Date: 20211014
  Serious: No
  Sender: FDA-Public Use
  Company Number: US-OSMOTICA_PHARMACEUTICAL_US_LLC-POI0573202000464

PATIENT
  Age: 60 Year
  Sex: Female

DRUGS (2)
  1. DIVIGEL [Suspect]
     Active Substance: ESTRADIOL
     Indication: HOT FLUSH
     Route: 062
     Dates: start: 202003
  2. DIVIGEL [Suspect]
     Active Substance: ESTRADIOL
     Indication: CHILLS

REACTIONS (3)
  - Wrong technique in product usage process [Recovered/Resolved]
  - Chills [Not Recovered/Not Resolved]
  - Drug ineffective [Not Recovered/Not Resolved]

NARRATIVE: CASE EVENT DATE: 2020
